FAERS Safety Report 20961260 (Version 1)
Quarter: 2022Q2

REPORT INFORMATION
  Report Type: Spontaneous
  Country: JP (occurrence: JP)
  Receive Date: 20220615
  Receipt Date: 20220615
  Transmission Date: 20220720
  Serious: Yes (Other)
  Sender: FDA-Public Use
  Company Number: JP-TEVA-2022-JP-002380J

PATIENT
  Age: 51 Year
  Sex: Female

DRUGS (9)
  1. TRIAZOLAM [Suspect]
     Active Substance: TRIAZOLAM
     Indication: Product used for unknown indication
     Dosage: 2 DOSAGE FORMS DAILY; BEFORE BEDTIME
     Route: 048
     Dates: end: 20220603
  2. ALPRAZOLAM [Concomitant]
     Active Substance: ALPRAZOLAM
     Dosage: DOSAGE IS UNKNOWN, AS NEEDED
     Route: 048
     Dates: end: 20220603
  3. SERTRALINE [Concomitant]
     Active Substance: SERTRALINE HYDROCHLORIDE
     Dosage: 2 DOSAGE FORMS DAILY; AFTER DINNER
     Route: 048
     Dates: end: 20220603
  4. COMIRNATY [Concomitant]
     Active Substance: TOZINAMERAN
     Dosage: DOSAGE IS UNKNOWN
     Route: 065
     Dates: start: 202108
  5. DIETARY SUPPLEMENT\PROBIOTICS [Concomitant]
     Active Substance: DIETARY SUPPLEMENT\PROBIOTICS
     Dosage: DOSAGE IS UNKNOWN
     Route: 065
  6. HERBALS [Concomitant]
     Active Substance: HERBALS
     Dosage: DOSAGE IS UNKNOWN
     Route: 065
  7. HERBALS [Concomitant]
     Active Substance: HERBALS
     Dosage: DOSAGE IS UNKNOWN
     Route: 065
  8. YOKUKANSANKACHIMPIHANGE [Concomitant]
     Dosage: DOSAGE IS UNKNOWN
     Route: 065
  9. HERBALS [Concomitant]
     Active Substance: HERBALS
     Dosage: DOSAGE IS UNKNOWN
     Route: 065

REACTIONS (22)
  - Paralysis [Recovering/Resolving]
  - Dementia [Recovering/Resolving]
  - Seizure [Recovering/Resolving]
  - Pain [Recovering/Resolving]
  - Hypoaesthesia [Recovering/Resolving]
  - Asthenia [Recovering/Resolving]
  - Salivary hypersecretion [Recovering/Resolving]
  - Dysarthria [Recovering/Resolving]
  - Mucosal pain [Recovering/Resolving]
  - Oropharyngeal pain [Recovering/Resolving]
  - Pain in jaw [Recovering/Resolving]
  - Burning sensation [Recovering/Resolving]
  - Dermatitis contact [Recovering/Resolving]
  - Hypersensitivity [Recovering/Resolving]
  - Rhinitis [Recovering/Resolving]
  - Nausea [Recovering/Resolving]
  - Decreased appetite [Recovering/Resolving]
  - Diarrhoea [Recovering/Resolving]
  - Tinnitus [Recovering/Resolving]
  - Dizziness [Recovering/Resolving]
  - Photosensitivity reaction [Recovering/Resolving]
  - Therapy cessation [Unknown]
